FAERS Safety Report 14600467 (Version 1)
Quarter: 2018Q1

REPORT INFORMATION
  Report Type: Spontaneous
  Country: US (occurrence: US)
  Receive Date: 20180305
  Receipt Date: 20180305
  Transmission Date: 20180509
  Serious: No
  Sender: FDA-Public Use
  Company Number: PHHY2018US031589

PATIENT
  Age: 55 Year
  Sex: Female

DRUGS (8)
  1. PROAIR HFA [Concomitant]
     Active Substance: ALBUTEROL SULFATE
     Indication: ASTHMA
     Dosage: UNK 7 WEEKS 2 DAYS
     Route: 055
     Dates: start: 20180101, end: 20180220
  2. MULTIVITAMINS [Concomitant]
     Active Substance: VITAMINS
     Indication: PRODUCT USED FOR UNKNOWN INDICATION
     Dosage: UNK  7 WEEKS 2 DAYS
     Route: 048
     Dates: start: 20180101, end: 20180220
  3. MAGNESIUM CHLORIDE. [Concomitant]
     Active Substance: MAGNESIUM CHLORIDE
     Indication: PRODUCT USED FOR UNKNOWN INDICATION
     Dosage: UNK 7 WEEKS 2 DAYS
     Route: 048
     Dates: start: 20180101, end: 20180220
  4. ATOPICA (ANIMAL HEALTH) [Suspect]
     Active Substance: CYCLOSPORINE
     Indication: PRODUCT USED FOR UNKNOWN INDICATION
     Dosage: 1 DRP, UNK
     Route: 048
  5. VITAMIN D [Concomitant]
     Active Substance: CHOLECALCIFEROL
     Indication: PRODUCT USED FOR UNKNOWN INDICATION
     Dosage: UNK 7 WEEKS 2 DAYS
     Route: 048
     Dates: start: 20180101, end: 20180220
  6. CALCIUM [Concomitant]
     Active Substance: CALCIUM
     Indication: PRODUCT USED FOR UNKNOWN INDICATION
     Dosage: UNK 7 WEEKS 2 DAYS
     Route: 048
     Dates: start: 20180101, end: 20180220
  7. ZINC. [Concomitant]
     Active Substance: ZINC
     Indication: PRODUCT USED FOR UNKNOWN INDICATION
     Dosage: UNK 7 WEEKS 2 DAYS
     Route: 048
     Dates: start: 20180101, end: 20180220
  8. TENEX [Concomitant]
     Active Substance: GUANFACINE HYDROCHLORIDE
     Indication: COUGH
     Dosage: UNK
     Route: 048
     Dates: start: 20180101, end: 20180220

REACTIONS (2)
  - Accidental exposure to product [Unknown]
  - Intentional product misuse [Unknown]
